FAERS Safety Report 10061187 (Version 1)
Quarter: 2014Q2

REPORT INFORMATION
  Report Type: Spontaneous
  Country: GB (occurrence: GB)
  Receive Date: 20140407
  Receipt Date: 20140407
  Transmission Date: 20141212
  Serious: Yes (Life-Threatening, Hospitalization)
  Sender: FDA-Public Use
  Company Number: GB-ABBVIE-14K-167-1221883-00

PATIENT
  Age: 63 Year
  Sex: Male

DRUGS (7)
  1. SODIUM VALPROATE [Suspect]
     Indication: CONVULSION
     Dosage: GASTRO-RESISTANT TABLET
     Route: 048
     Dates: start: 20120828, end: 20130325
  2. TEMOZOLOMIDE [Suspect]
     Indication: GLIOMA
     Route: 048
     Dates: start: 20130214, end: 20130314
  3. OMEPRAZOLE [Concomitant]
     Indication: PRODUCT USED FOR UNKNOWN INDICATION
  4. AMLODIPINE [Concomitant]
     Indication: PRODUCT USED FOR UNKNOWN INDICATION
  5. BISOPROLOL [Concomitant]
     Indication: PRODUCT USED FOR UNKNOWN INDICATION
  6. PARACETAMOL [Concomitant]
     Indication: PRODUCT USED FOR UNKNOWN INDICATION
  7. THERAPEUTIC RADIOPHARMACEUTICALS [Concomitant]
     Indication: PRODUCT USED FOR UNKNOWN INDICATION

REACTIONS (4)
  - Pancytopenia [Recovered/Resolved]
  - Jaundice [Recovered/Resolved]
  - Hepatic failure [Recovered/Resolved]
  - Liver function test abnormal [Recovered/Resolved]
